FAERS Safety Report 14674179 (Version 1)
Quarter: 2018Q1

REPORT INFORMATION
  Report Type: Spontaneous
  Country: US (occurrence: US)
  Receive Date: 20180323
  Receipt Date: 20180323
  Transmission Date: 20180509
  Serious: No
  Sender: FDA-Public Use
  Company Number: US-PERRIGO-17US027709

PATIENT
  Age: 95 Year
  Sex: Female
  Weight: 72.56 kg

DRUGS (7)
  1. MEDROL [Concomitant]
     Active Substance: METHYLPREDNISOLONE
     Indication: ATRIAL FIBRILLATION
     Dosage: UNK
     Route: 048
  2. ACETAMINOPHEN. [Suspect]
     Active Substance: ACETAMINOPHEN
     Indication: ARTHRALGIA
     Dosage: 1300 MG, EVERY 8 HOURS
     Route: 048
     Dates: start: 20171019, end: 20171021
  3. ACETAMINOPHEN. [Suspect]
     Active Substance: ACETAMINOPHEN
     Dosage: 650 MG, EVERY 8 HOURS
     Route: 048
     Dates: start: 20171022, end: 20171022
  4. FISH OIL [Concomitant]
     Active Substance: FISH OIL
     Indication: SUPPLEMENTATION THERAPY
     Dosage: UNK
     Route: 048
  5. CALCIUM [Concomitant]
     Active Substance: CALCIUM
     Indication: SUPPLEMENTATION THERAPY
     Dosage: UNK
     Route: 048
  6. WARFARIN [Concomitant]
     Active Substance: WARFARIN
     Indication: ANTICOAGULANT THERAPY
  7. WARFARIN [Concomitant]
     Active Substance: WARFARIN
     Indication: CARDIAC ASSISTANCE DEVICE USER
     Dosage: UNK
     Route: 048

REACTIONS (2)
  - Underdose [Recovered/Resolved]
  - Constipation [Not Recovered/Not Resolved]

NARRATIVE: CASE EVENT DATE: 20171019
